FAERS Safety Report 25216342 (Version 2)
Quarter: 2025Q2

REPORT INFORMATION
  Report Type: Spontaneous
  Country: US (occurrence: US)
  Receive Date: 20250418
  Receipt Date: 20250421
  Transmission Date: 20250716
  Serious: No
  Sender: ROCHE
  Company Number: US-ROCHE-10000259655

PATIENT
  Age: 34 Year
  Sex: Male

DRUGS (10)
  1. RITUXIMAB [Suspect]
     Active Substance: RITUXIMAB
     Indication: Heavy chain disease
     Route: 065
  2. BENDAMUSTINE [Suspect]
     Active Substance: BENDAMUSTINE
     Indication: Heavy chain disease
     Route: 065
  3. AZITHROMYCIN [Concomitant]
     Active Substance: AZITHROMYCIN
  4. niltazoxanide [Concomitant]
  5. PANTOPRAZOLE [Concomitant]
     Active Substance: PANTOPRAZOLE
  6. CLARITHROMYCIN [Concomitant]
     Active Substance: CLARITHROMYCIN
  7. AMOXICILLIN [Concomitant]
     Active Substance: AMOXICILLIN
  8. METRONIDAZOLE [Concomitant]
     Active Substance: METRONIDAZOLE
  9. ALBENDAZOLE [Concomitant]
     Active Substance: ALBENDAZOLE
  10. IBRUTINIB [Concomitant]
     Active Substance: IBRUTINIB
     Indication: Heavy chain disease

REACTIONS (2)
  - Drug ineffective [Unknown]
  - No adverse event [Unknown]
